FAERS Safety Report 8574337-9 (Version None)
Quarter: 2012Q3

REPORT INFORMATION
  Report Type: 
  Country: None (occurrence: None)
  Receive Date: 20120806
  Receipt Date: 20120730
  Transmission Date: 20120928
  Serious: Yes (Hospitalization)
  Sender: FDA-Public Use
  Company Number: AT-TEVA-351252ISR

PATIENT
  Age: 85 Year
  Sex: Male

DRUGS (2)
  1. DABIGATRAN ETEXILATE [Interacting]
     Indication: ANTICOAGULANT THERAPY
     Route: 065
  2. LOPERAMIDE [Suspect]
     Indication: DIARRHOEA
     Route: 065

REACTIONS (2)
  - HAEMATURIA [None]
  - DRUG INTERACTION [None]
